FAERS Safety Report 19819302 (Version 1)
Quarter: 2021Q3

REPORT INFORMATION
  Report Type: Spontaneous
  Country: JP (occurrence: JP)
  Receive Date: 20210913
  Receipt Date: 20210913
  Transmission Date: 20211014
  Serious: Yes (Other)
  Sender: FDA-Public Use
  Company Number: JP-ORION CORPORATION ORION PHARMA-ENT 2021-0100

PATIENT
  Sex: Female

DRUGS (5)
  1. REQUIP [Concomitant]
     Active Substance: ROPINIROLE HYDROCHLORIDE
     Dosage: STRENGTH: 0.25 MG
     Route: 065
  2. COMTAN [Suspect]
     Active Substance: ENTACAPONE
     Dosage: STRENGTH: 100 MG
     Route: 048
  3. LEVODOPA CARBID [Concomitant]
     Active Substance: CARBIDOPA\LEVODOPA
     Route: 065
  4. COMTAN [Suspect]
     Active Substance: ENTACAPONE
     Indication: PARKINSON^S DISEASE
     Dosage: STRENGTH: 100 MG
     Route: 048
  5. MADOPAR [Concomitant]
     Active Substance: BENSERAZIDE HYDROCHLORIDE\LEVODOPA
     Route: 065

REACTIONS (3)
  - Hallucination [Recovered/Resolved]
  - Parkinson^s disease [Recovered/Resolved]
  - Dementia [Unknown]

NARRATIVE: CASE EVENT DATE: 2017
